FAERS Safety Report 4277467-5 (Version None)
Quarter: 2004Q1

REPORT INFORMATION
  Report Type: 
  Country: None (occurrence: None)
  Receive Date: 20040121
  Receipt Date: 20040121
  Transmission Date: 20041129
  Serious: No
  Sender: FDA-Public Use
  Company Number: None

PATIENT
  Age: 70 Year
  Sex: Male

DRUGS (12)
  1. DOFETILIDE 0.25 MG PFIZER [Suspect]
     Indication: ATRIAL FIBRILLATION
     Dosage: 0.25 MG BID ORAL
     Route: 048
     Dates: start: 20031017, end: 20031018
  2. MEXILETINE HCL [Concomitant]
  3. ASPIRIN [Concomitant]
  4. WARFARIN SODIUM [Concomitant]
  5. METHIMAZOLE [Concomitant]
  6. INSULIN [Concomitant]
  7. SIMVASTATIN [Concomitant]
  8. ATENOLOL [Concomitant]
  9. HYDROCORTISONE [Concomitant]
  10. DOCUSATE [Concomitant]
  11. CARISOPRODOL [Concomitant]
  12. PERCOCET [Concomitant]

REACTIONS (3)
  - ELECTROCARDIOGRAM QT CORRECTED INTERVAL PROLONGED [None]
  - TORSADE DE POINTES [None]
  - VENTRICULAR TACHYCARDIA [None]
